FAERS Safety Report 5992158-8 (Version None)
Quarter: 2008Q4

REPORT INFORMATION
  Report Type: 
  Country: None (occurrence: None)
  Receive Date: 20081202
  Receipt Date: 20071029
  Transmission Date: 20090506
  Serious: Yes (Other)
  Sender: FDA-Public Use
  Company Number: WAES 0706USA00792

PATIENT
  Age: 39 Year
  Sex: Female

DRUGS (1)
  1. FOSAMAX [Suspect]
     Indication: OSTEOPOROSIS
     Dosage: 70 MG/WKY/PO
     Route: 048
     Dates: start: 20040415, end: 20060714

REACTIONS (10)
  - ABSCESS [None]
  - ACROCHORDON [None]
  - ANAEMIA [None]
  - DENTAL CARIES [None]
  - FATIGUE [None]
  - GINGIVAL DISORDER [None]
  - INADEQUATE DIET [None]
  - OSTEONECROSIS [None]
  - RESORPTION BONE INCREASED [None]
  - WEIGHT DECREASED [None]
